FAERS Safety Report 10998478 (Version 1)
Quarter: 2015Q2

REPORT INFORMATION
  Report Type: Spontaneous
  Country: US (occurrence: US)
  Receive Date: 20150408
  Receipt Date: 20150408
  Transmission Date: 20150821
  Serious: No
  Sender: FDA-Public Use
  Company Number: US-SA-2014SA038641

PATIENT
  Age: 21 Year
  Sex: Male

DRUGS (2)
  1. ALLEGRA [Suspect]
     Active Substance: FEXOFENADINE HYDROCHLORIDE
     Route: 065
     Dates: start: 20140325
  2. ADVIL [Suspect]
     Active Substance: IBUPROFEN
     Route: 065
     Dates: start: 20140325

REACTIONS (1)
  - Somnolence [Unknown]
